FAERS Safety Report 4936305-5 (Version None)
Quarter: 2006Q1

REPORT INFORMATION
  Report Type: 
  Country: None (occurrence: None)
  Receive Date: 20060127
  Receipt Date: 20051125
  Transmission Date: 20060701
  Serious: Yes (Other)
  Sender: FDA-Public Use
  Company Number: 2005162788

PATIENT
  Age: 52 Year
  Sex: Female
  Weight: 48.0813 kg

DRUGS (6)
  1. LYRICA [Suspect]
     Indication: FIBROMYALGIA
     Dosage: 150 MG (75 MG, 2 IN 1 D), ORAL
     Route: 048
     Dates: start: 20051101
  2. LYRICA [Suspect]
     Indication: PERIARTHRITIS
     Dosage: 150 MG (75 MG, 2 IN 1 D), ORAL
     Route: 048
     Dates: start: 20051101
  3. NEURONTIN [Suspect]
     Indication: ILL-DEFINED DISORDER
  4. THYROID TAB [Concomitant]
  5. CLIDINIUM BROMIDE [Concomitant]
  6. AMITRIPTYLINE HCL [Concomitant]

REACTIONS (4)
  - DYSURIA [None]
  - GASTROENTERITIS VIRAL [None]
  - MOUTH ULCERATION [None]
  - VAGINAL PAIN [None]
